FAERS Safety Report 4417812-0 (Version None)
Quarter: 2004Q3

REPORT INFORMATION
  Report Type: 
  Country: None (occurrence: None)
  Receive Date: 20040803
  Receipt Date: 20040723
  Transmission Date: 20050211
  Serious: Yes (Hospitalization)
  Sender: FDA-Public Use
  Company Number: 2004225178DE

PATIENT
  Age: 19 Year
  Sex: Male
  Weight: 58 kg

DRUGS (2)
  1. GENOTROPIN [Suspect]
     Indication: HYPOPITUITARISM
     Dosage: 1.8 MG, QD, SUBCUTANEOUS
     Route: 058
     Dates: start: 20021018, end: 20040723
  2. THYROXIN (LEVOTHYROXINE SODIUM) [Concomitant]

REACTIONS (1)
  - GRAND MAL CONVULSION [None]
